FAERS Safety Report 18604979 (Version 1)
Quarter: 2020Q4

REPORT INFORMATION
  Report Type: Other
  Country: US (occurrence: US)
  Receive Date: 20201211
  Receipt Date: 20201211
  Transmission Date: 20210114
  Serious: No
  Sender: FDA-Public Use
  Company Number: US-ROCHE-2730415

PATIENT
  Sex: Female

DRUGS (1)
  1. OCREVUS [Suspect]
     Active Substance: OCRELIZUMAB
     Indication: RELAPSING-REMITTING MULTIPLE SCLEROSIS
     Dosage: DATES OF SUBSEQUENT TREATMENT: 04/APR/2019, 23/SEP/2019, 27/SEP/2019, 10/APR/2020 AND 12/OCT/2020
     Route: 065
     Dates: start: 20190321

REACTIONS (3)
  - COVID-19 [Unknown]
  - Cognitive disorder [Unknown]
  - Visual impairment [Unknown]
